FAERS Safety Report 20491030 (Version 1)
Quarter: 2022Q1

REPORT INFORMATION
  Report Type: Spontaneous
  Country: US (occurrence: None)
  Receive Date: 20220218
  Receipt Date: 20220218
  Transmission Date: 20220423
  Serious: Yes (Other)
  Sender: FDA-Public Use
  Company Number: None

PATIENT
  Age: 69 Year
  Sex: Female
  Weight: 78.66 kg

DRUGS (3)
  1. PAXLOVID [Suspect]
     Active Substance: NIRMATRELVIR\RITONAVIR
     Dosage: FREQUENCY : TWICE A DAY;?
     Route: 051
     Dates: start: 20220217, end: 20220218
  2. PAXLOVID [Concomitant]
     Active Substance: NIRMATRELVIR\RITONAVIR
     Dates: start: 20220217, end: 20220218
  3. FORTEO [Suspect]
     Active Substance: TERIPARATIDE

REACTIONS (3)
  - Chest pain [None]
  - Chest discomfort [None]
  - Monoplegia [None]

NARRATIVE: CASE EVENT DATE: 20220217
